FAERS Safety Report 13164167 (Version 1)
Quarter: 2017Q1

REPORT INFORMATION
  Report Type: Spontaneous
  Country: GB (occurrence: GB)
  Receive Date: 20170130
  Receipt Date: 20170130
  Transmission Date: 20170428
  Serious: Yes (Other)
  Sender: FDA-Public Use
  Company Number: GB-TEVA-733533ACC

PATIENT
  Sex: Female
  Weight: 85 kg

DRUGS (6)
  1. IBUPROFEN. [Concomitant]
     Active Substance: IBUPROFEN
  2. PREGABALIN. [Suspect]
     Active Substance: PREGABALIN
     Indication: POOR QUALITY SLEEP
     Dosage: 225 MILLIGRAM DAILY;
     Route: 048
     Dates: start: 20150302
  3. DEXAMFETAMINE SULFATE [Concomitant]
     Active Substance: DEXTROAMPHETAMINE SULFATE
  4. BACLOFEN. [Suspect]
     Active Substance: BACLOFEN
     Indication: POOR QUALITY SLEEP
     Route: 048
     Dates: start: 20150901
  5. ANADIN PARACETAMOL [Concomitant]
     Active Substance: ACETAMINOPHEN
  6. AMITRIPTYLINE [Concomitant]
     Active Substance: AMITRIPTYLINE

REACTIONS (4)
  - Condition aggravated [Unknown]
  - Dissociation [Unknown]
  - Sensory loss [Unknown]
  - Hypoaesthesia [Not Recovered/Not Resolved]

NARRATIVE: CASE EVENT DATE: 20161229
